FAERS Safety Report 7296862-3 (Version None)
Quarter: 2011Q1

REPORT INFORMATION
  Report Type: 
  Country: None (occurrence: None)
  Receive Date: 20110216
  Receipt Date: 20110204
  Transmission Date: 20110831
  Serious: Yes (Hospitalization)
  Sender: FDA-Public Use
  Company Number: PHHY2011IT09131

PATIENT
  Sex: Female

DRUGS (3)
  1. ALOE VERA [Concomitant]
     Dosage: UNK
  2. CLARITHROMYCIN [Suspect]
     Indication: SKIN INFECTION
     Dosage: 500 MG, UNK
     Route: 048
     Dates: start: 20110101, end: 20110103
  3. ITRACONAZOLE [Suspect]
     Indication: ONYCHOMYCOSIS
     Dosage: 400 MG, UNK
     Route: 048
     Dates: start: 20101231, end: 20110103

REACTIONS (2)
  - DELIRIUM [None]
  - EPILEPSY [None]
